FAERS Safety Report 10064750 (Version 2)
Quarter: 2014Q2

REPORT INFORMATION
  Report Type: Spontaneous
  Country: JP (occurrence: JP)
  Receive Date: 20140408
  Receipt Date: 20140408
  Transmission Date: 20141212
  Serious: Yes (Death)
  Sender: FDA-Public Use
  Company Number: JP-JNJFOC-20140109769

PATIENT
  Age: 97 Year
  Sex: Male

DRUGS (2)
  1. RISPERDAL [Suspect]
     Indication: SEDATION
     Route: 048
     Dates: start: 20140113, end: 20140113
  2. RISPERDAL [Suspect]
     Indication: SEDATION
     Route: 048
     Dates: start: 20140114

REACTIONS (4)
  - Pneumonia aspiration [Fatal]
  - Marasmus [Fatal]
  - Off label use [Unknown]
  - Somnolence [Recovered/Resolved]
